FAERS Safety Report 13230316 (Version 1)
Quarter: 2017Q1

REPORT INFORMATION
  Report Type: Spontaneous
  Country: US (occurrence: US)
  Receive Date: 20170214
  Receipt Date: 20170214
  Transmission Date: 20170428
  Serious: Yes (Hospitalization)
  Sender: FDA-Public Use
  Company Number: None

PATIENT

DRUGS (1)
  1. TRULICITY [Suspect]
     Active Substance: DULAGLUTIDE
     Indication: TYPE 2 DIABETES MELLITUS
     Dates: start: 20170205, end: 20170210

REACTIONS (9)
  - Diabetic ketoacidosis [None]
  - Abdominal pain [None]
  - Hypokalaemia [None]
  - Vomiting [None]
  - Polyuria [None]
  - Nausea [None]
  - Electrolyte imbalance [None]
  - Abdominal discomfort [None]
  - Blood bicarbonate decreased [None]

NARRATIVE: CASE EVENT DATE: 20170210
